FAERS Safety Report 9512093 (Version 1)
Quarter: 2013Q1

REPORT INFORMATION
  Report Type: Spontaneous
  Country: US (occurrence: None)
  Receive Date: 20130305
  Receipt Date: 20130305
  Transmission Date: 20140127
  Serious: Yes (Hospitalization, Disabling, Other)
  Sender: FDA-Public Use
  Company Number: 163-21880-12102506

PATIENT
  Age: 85 Year
  Sex: Female
  Weight: 81.19 kg

DRUGS (10)
  1. REVLIMID (LENALIDOMIDE) (25 MILLIGRAM, CAPSULES) [Suspect]
     Indication: PLASMA CELL MYELOMA
     Dosage: 25 MG, 21 IN 21 D, PO
     Route: 048
     Dates: start: 20120916, end: 20121011
  2. COUMADIN (WARFARIN SODIUM) (UNKNOWN) [Concomitant]
  3. FEOSOL (FERROUS SULFATE) (UNKNOWN) [Concomitant]
  4. DILTIAZEM (DILTIAZEM) (UNKNOWN) (DILTIAZEM) [Concomitant]
  5. ATENOLOL (ATENOLOL) (UNKNOWN) [Concomitant]
  6. DIOVAN (VALSARTAN) (UNKNOWN) [Concomitant]
  7. SIMVASTATIN [Concomitant]
  8. TRIAMTERENE-HCTZ (DYAZIDE) (UNKNOWN)? [Concomitant]
  9. CENTRUM SILVER (CENTRUM SILVER) (UNKNOWN) [Concomitant]
  10. MAXZIDE (DYAZIDE) (UNKNOWN) [Concomitant]

REACTIONS (4)
  - Disorientation [None]
  - Renal failure [None]
  - Weight decreased [None]
  - Depression [None]
